FAERS Safety Report 13017949 (Version 3)
Quarter: 2017Q1

REPORT INFORMATION
  Report Type: Spontaneous
  Country: FR (occurrence: FR)
  Receive Date: 20161212
  Receipt Date: 20170313
  Transmission Date: 20170428
  Serious: Yes (Other)
  Sender: FDA-Public Use
  Company Number: FR-JNJFOC-20161208534

PATIENT
  Age: 14 Year
  Sex: Female
  Weight: 39 kg

DRUGS (1)
  1. REMICADE [Suspect]
     Active Substance: INFLIXIMAB
     Indication: CROHN^S DISEASE
     Route: 042
     Dates: end: 20161121

REACTIONS (3)
  - Off label use [Unknown]
  - Systemic lupus erythematosus [Unknown]
  - Product use issue [Unknown]

NARRATIVE: CASE EVENT DATE: 20161121
